FAERS Safety Report 10047648 (Version 1)
Quarter: 2014Q1

REPORT INFORMATION
  Report Type: Spontaneous
  Country: BR (occurrence: BR)
  Receive Date: 20140331
  Receipt Date: 20140331
  Transmission Date: 20141002
  Serious: Yes (Other)
  Sender: FDA-Public Use
  Company Number: BR-PFIZER INC-2014085573

PATIENT
  Age: 79 Year
  Sex: Female
  Weight: 47 kg

DRUGS (5)
  1. LIPITOR [Suspect]
     Dosage: 1 TABLET (40 MG), ONCE DAILY
     Route: 048
     Dates: start: 201301
  2. ALDACTONE [Concomitant]
     Dosage: 1 TABLET, ONCE DAILY
  3. NORVASC [Concomitant]
     Dosage: 2 TABLET, DAILY
  4. SELOZOK [Concomitant]
     Dosage: UNK
  5. XARELTO [Concomitant]
     Indication: THROMBOSIS
     Dosage: UNK

REACTIONS (1)
  - Arrhythmia [Unknown]
